FAERS Safety Report 7051518-7 (Version None)
Quarter: 2010Q4

REPORT INFORMATION
  Report Type: 
  Country: None (occurrence: None)
  Receive Date: 20101019
  Receipt Date: 20101008
  Transmission Date: 20110411
  Serious: Yes (Other)
  Sender: FDA-Public Use
  Company Number: PHHY2010IE67639

PATIENT
  Age: 42 Year
  Sex: Female

DRUGS (3)
  1. DIOVAN [Suspect]
     Indication: BLOOD PRESSURE INCREASED
     Dosage: 40 MG, UNK
     Route: 048
     Dates: start: 20091001, end: 20100301
  2. ZANIDIP [Concomitant]
     Dosage: 10 MG, UNK
  3. ELTROXIN [Concomitant]
     Dosage: 100 UG, UNK

REACTIONS (1)
  - SINUS CONGESTION [None]
